FAERS Safety Report 15487888 (Version 2)
Quarter: 2018Q4

REPORT INFORMATION
  Report Type: Report from Study
  Country: US (occurrence: US)
  Receive Date: 20181011
  Receipt Date: 20181108
  Transmission Date: 20190205
  Serious: No
  Sender: FDA-Public Use
  Company Number: US-SA-2018SA276549

PATIENT
  Age: 62 Year
  Sex: Female

DRUGS (3)
  1. INSULIN GLARGINE [Suspect]
     Active Substance: INSULIN GLARGINE
     Indication: TYPE 2 DIABETES MELLITUS
     Dosage: 14 U, QD
     Route: 065
     Dates: start: 20180926
  2. INSULIN GLARGINE [Suspect]
     Active Substance: INSULIN GLARGINE
     Dosage: 24 U, QD
     Route: 065
  3. INSULIN GLARGINE [Suspect]
     Active Substance: INSULIN GLARGINE
     Dosage: 16 U, QD NIGHTLY
     Route: 065

REACTIONS (6)
  - Irritability [Unknown]
  - Blood glucose increased [Unknown]
  - Impaired healing [Unknown]
  - Product dose omission [Unknown]
  - Intentional product use issue [Unknown]
  - Stress [Unknown]

NARRATIVE: CASE EVENT DATE: 20180926
